FAERS Safety Report 24974234 (Version 1)
Quarter: 2025Q1

REPORT INFORMATION
  Report Type: Spontaneous
  Country: US (occurrence: US)
  Receive Date: 20250217
  Receipt Date: 20250217
  Transmission Date: 20250409
  Serious: No
  Sender: ALEXION PHARMACEUTICALS
  Company Number: US-AstraZeneca-CH-00807082A

PATIENT

DRUGS (1)
  1. FARXIGA [Suspect]
     Active Substance: DAPAGLIFLOZIN PROPANEDIOL
     Route: 065

REACTIONS (6)
  - Pruritus [Unknown]
  - Herpes zoster [Unknown]
  - Pruritus genital [Unknown]
  - Musculoskeletal discomfort [Unknown]
  - Product prescribing issue [Unknown]
  - Anal pruritus [Unknown]
